FAERS Safety Report 8140033-5 (Version None)
Quarter: 2012Q1

REPORT INFORMATION
  Report Type: 
  Country: None (occurrence: None)
  Receive Date: 20120215
  Receipt Date: 20120206
  Transmission Date: 20120608
  Serious: Yes (Other)
  Sender: FDA-Public Use
  Company Number: US-ASTRAZENECA-2012SE08101

PATIENT
  Age: 44 Year
  Sex: Female

DRUGS (1)
  1. LIDOCAINE [Suspect]
     Indication: TOOTH EXTRACTION

REACTIONS (1)
  - TYPE I HYPERSENSITIVITY [None]
